FAERS Safety Report 16650335 (Version 1)
Quarter: 2019Q3

REPORT INFORMATION
  Report Type: Spontaneous
  Country: US (occurrence: US)
  Receive Date: 20190731
  Receipt Date: 20190731
  Transmission Date: 20191004
  Serious: No
  Sender: FDA-Public Use
  Company Number: US-PERRIGO-18US010545

PATIENT
  Age: 67 Year
  Sex: Female
  Weight: 43.99 kg

DRUGS (3)
  1. FIORICET [Concomitant]
     Active Substance: ACETAMINOPHEN\BUTALBITAL\CAFFEINE
     Indication: MIGRAINE
     Dosage: UNK
     Route: 065
     Dates: start: 1963
  2. TRETINOIN. [Suspect]
     Active Substance: TRETINOIN
     Indication: ACNE
     Dosage: LIGHT FILM, QD
     Route: 061
     Dates: start: 20180917, end: 20180919
  3. TRETINOIN. [Suspect]
     Active Substance: TRETINOIN
     Dosage: LIGHT FILM, BID
     Route: 061
     Dates: start: 20180920, end: 20180929

REACTIONS (2)
  - Inappropriate schedule of product administration [Recovered/Resolved]
  - Drug ineffective [Unknown]

NARRATIVE: CASE EVENT DATE: 20180917
